FAERS Safety Report 17184125 (Version 1)
Quarter: 2019Q4

REPORT INFORMATION
  Report Type: Spontaneous
  Country: US (occurrence: US)
  Receive Date: 20191219
  Receipt Date: 20191219
  Transmission Date: 20200122
  Serious: Yes (Hospitalization)
  Sender: FDA-Public Use
  Company Number: None

PATIENT
  Age: 57 Year
  Sex: Male
  Weight: 84.96 kg

DRUGS (22)
  1. ADDERALL XR [Concomitant]
     Active Substance: AMPHETAMINE ASPARTATE\AMPHETAMINE SULFATE\DEXTROAMPHETAMINE SACCHARATE\DEXTROAMPHETAMINE SULFATE
     Dates: start: 20190924
  2. MIRABEGRON [Concomitant]
     Active Substance: MIRABEGRON
     Dates: start: 20191030
  3. APIXABAN [Concomitant]
     Active Substance: APIXABAN
     Dates: start: 20191105
  4. BACLOFEN. [Concomitant]
     Active Substance: BACLOFEN
     Dates: start: 20190926
  5. CELECOXIB. [Concomitant]
     Active Substance: CELECOXIB
     Dates: start: 20191113
  6. ATORVASTATIN [Concomitant]
     Active Substance: ATORVASTATIN
     Dates: start: 20191106
  7. HYDRALAZINE [Concomitant]
     Active Substance: HYDRALAZINE HYDROCHLORIDE
     Dates: start: 20191002
  8. MELATONIN [Concomitant]
     Active Substance: MELATONIN
     Dates: start: 20190923
  9. ACIDOPHILUS [Concomitant]
     Active Substance: LACTOBACILLUS ACIDOPHILUS
     Dates: start: 20190923
  10. DULOXETINE. [Concomitant]
     Active Substance: DULOXETINE
     Dates: start: 20191022
  11. SULFAMETHOXAZOLE/TRIMETHOPRIM [Suspect]
     Active Substance: SULFAMETHOXAZOLE\TRIMETHOPRIM
     Indication: URINARY TRACT INFECTION
     Route: 048
     Dates: start: 20191119, end: 20191125
  12. FAMOTIDINE. [Concomitant]
     Active Substance: FAMOTIDINE
     Dates: start: 20190923
  13. DANTROLENE. [Concomitant]
     Active Substance: DANTROLENE SODIUM
     Dates: start: 20191028
  14. HYDROCHLOROTHIAZIDE. [Concomitant]
     Active Substance: HYDROCHLOROTHIAZIDE
     Dates: start: 20191030
  15. LEVOTHYROXINE. [Concomitant]
     Active Substance: LEVOTHYROXINE
     Dates: start: 20191108
  16. LISINOPRIL. [Concomitant]
     Active Substance: LISINOPRIL
     Dates: start: 20191107
  17. METAXALONE. [Concomitant]
     Active Substance: METAXALONE
     Dates: start: 20190927
  18. ZOLPIDEM [Concomitant]
     Active Substance: ZOLPIDEM TARTRATE
     Dates: start: 20191012
  19. ACETAMINOPHEN. [Concomitant]
     Active Substance: ACETAMINOPHEN
     Dates: start: 20190923
  20. AMITRIPTYLINE [Concomitant]
     Active Substance: AMITRIPTYLINE
     Dates: start: 20190923
  21. AMLODIPINE [Concomitant]
     Active Substance: AMLODIPINE BESYLATE
     Dates: start: 20191104
  22. GABAPENTIN. [Concomitant]
     Active Substance: GABAPENTIN
     Dates: start: 20191028

REACTIONS (5)
  - Hyperhidrosis [None]
  - Hepatic enzyme increased [None]
  - Pyrexia [None]
  - Mental status changes [None]
  - Fatigue [None]

NARRATIVE: CASE EVENT DATE: 20191126
